FAERS Safety Report 17888935 (Version 1)
Quarter: 2020Q2

REPORT INFORMATION
  Report Type: Spontaneous
  Country: US (occurrence: US)
  Receive Date: 20200611
  Receipt Date: 20200611
  Transmission Date: 20200714
  Serious: Yes (Hospitalization)
  Sender: FDA-Public Use
  Company Number: None

PATIENT
  Age: 46 Year
  Sex: Female

DRUGS (14)
  1. CYCLOBENZAPAR [Concomitant]
  2. IBUPROFEN. [Concomitant]
     Active Substance: IBUPROFEN
  3. IBRANCE [Suspect]
     Active Substance: PALBOCICLIB
     Indication: BREAST CANCER FEMALE
     Dosage: 1 TAB QD PO 21 D ON - 7 D OFF
     Route: 048
     Dates: start: 20200108
  4. ONDANSETRON [Concomitant]
     Active Substance: ONDANSETRON
  5. DEXAMETHASON [Concomitant]
     Active Substance: DEXAMETHASONE
  6. OXYCODONE [Concomitant]
     Active Substance: OXYCODONE
  7. XGEVA [Concomitant]
     Active Substance: DENOSUMAB
  8. PANTOPRAZOLE [Concomitant]
     Active Substance: PANTOPRAZOLE
  9. SMZ/TIMP DS [Concomitant]
  10. FENTANYL. [Concomitant]
     Active Substance: FENTANYL
  11. VITAMIN D [Concomitant]
     Active Substance: VITAMIN D NOS
  12. ZOLADEX [Concomitant]
     Active Substance: GOSERELIN ACETATE
  13. TRAMADOL HCL [Concomitant]
     Active Substance: TRAMADOL HYDROCHLORIDE
  14. METOCLOPRAM [Concomitant]
     Active Substance: METOCLOPRAMIDE

REACTIONS (1)
  - Therapy interrupted [None]

NARRATIVE: CASE EVENT DATE: 202006
